FAERS Safety Report 6275865-1 (Version None)
Quarter: 2009Q3

REPORT INFORMATION
  Report Type: 
  Country: None (occurrence: None)
  Receive Date: 20090721
  Receipt Date: 20090717
  Transmission Date: 20100115
  Serious: Yes (Death)
  Sender: FDA-Public Use
  Company Number: JP-GILEAD-2009-0023170

PATIENT
  Sex: Male

DRUGS (2)
  1. TRUVADA [Suspect]
     Indication: HIV INFECTION
     Route: 048
     Dates: start: 20060406, end: 20080801
  2. KALETRA [Suspect]
     Indication: HIV INFECTION
     Dates: start: 20061128, end: 20080101

REACTIONS (1)
  - DEATH [None]
